FAERS Safety Report 5422299-5 (Version None)
Quarter: 2007Q3

REPORT INFORMATION
  Report Type: 
  Country: None (occurrence: None)
  Receive Date: 20070822
  Receipt Date: 20070817
  Transmission Date: 20080115
  Serious: Yes (Hospitalization, Other)
  Sender: FDA-Public Use
  Company Number: HQWYE684024NOV04

PATIENT
  Sex: Female
  Weight: 70.37 kg

DRUGS (4)
  1. PREMPRO [Suspect]
     Indication: PROPHYLAXIS
     Dosage: 0.625 MG
     Route: 048
     Dates: start: 19990701, end: 20001101
  2. PREMPRO [Suspect]
     Indication: OSTEOPOROSIS
  3. PROVERA [Suspect]
     Indication: MENOPAUSE
     Dosage: UNKNOWN
     Route: 048
     Dates: start: 19900101, end: 19980101
  4. CONJUGATED ESTROGENS [Suspect]
     Indication: MENOPAUSE
     Dosage: UNKNOWN
     Route: 048
     Dates: start: 19900101, end: 19980101

REACTIONS (1)
  - CONTRALATERAL BREAST CANCER [None]
